FAERS Safety Report 17005717 (Version 1)
Quarter: 2019Q4

REPORT INFORMATION
  Report Type: Spontaneous
  Country: US (occurrence: US)
  Receive Date: 20191106
  Receipt Date: 20191106
  Transmission Date: 20200122
  Serious: No
  Sender: FDA-Public Use
  Company Number: None

PATIENT
  Age: 49 Year
  Sex: Female
  Weight: 72 kg

DRUGS (9)
  1. JUNEL 1.28 DAILY [Concomitant]
  2. GENERIC XANAX 2.5 MG AS NEEDED [Concomitant]
  3. FLONASE DAILY [Concomitant]
  4. YUVAFEM (TWICE WEEKLY) [Concomitant]
  5. WIXELA INHUB [Suspect]
     Active Substance: FLUTICASONE PROPIONATE\SALMETEROL XINAFOATE
     Indication: ASTHMA
     Route: 055
  6. SINGULAIR 10 MG DAILY [Concomitant]
  7. CLARITIN-D NOS [Concomitant]
     Active Substance: LORATADINE\PSEUDOEPHEDRINE SULFATE
  8. MULTIVITAMIN [Concomitant]
     Active Substance: VITAMINS
  9. FLUOXETINE 20 MG DAILY [Concomitant]

REACTIONS (8)
  - Drug ineffective [None]
  - Fatigue [None]
  - Product substitution issue [None]
  - Poor quality sleep [None]
  - Insurance issue [None]
  - Chest discomfort [None]
  - Dyspnoea exertional [None]
  - Cough [None]

NARRATIVE: CASE EVENT DATE: 20191015
